FAERS Safety Report 9372568 (Version 1)
Quarter: 2013Q2

REPORT INFORMATION
  Report Type: Report from Study
  Country: US (occurrence: US)
  Receive Date: 20130627
  Receipt Date: 20130627
  Transmission Date: 20140414
  Serious: Yes (Other)
  Sender: FDA-Public Use
  Company Number: US-MYLANLABS-2013S1001186

PATIENT
  Age: 63 Year
  Sex: Male

DRUGS (11)
  1. CLOZAPINE TABLETS [Suspect]
     Indication: SCHIZOPHRENIA
     Route: 048
     Dates: end: 20130109
  2. ARTANE [Concomitant]
     Indication: EXTRAPYRAMIDAL DISORDER
     Route: 048
  3. TAMSULOSIN [Concomitant]
     Indication: BENIGN PROSTATIC HYPERPLASIA
     Route: 048
  4. PRILOSEC [Concomitant]
     Indication: GASTROOESOPHAGEAL REFLUX DISEASE
     Route: 048
  5. METFORMIN [Concomitant]
     Indication: DIABETES MELLITUS
     Route: 048
  6. FLUOXETINE [Concomitant]
     Indication: DEPRESSION
     Route: 048
  7. ASA [Concomitant]
     Route: 048
  8. ALPRAZOLAM [Concomitant]
     Indication: ANXIETY
     Route: 048
  9. DOCUSATE SODIUM\SENNOSIDES [Concomitant]
     Indication: CONSTIPATION
     Route: 048
  10. VITAMIN D [Concomitant]
     Route: 048
  11. MIRALAX /00754501/ [Concomitant]
     Indication: CONSTIPATION
     Route: 048

REACTIONS (1)
  - Granulocytopenia [Recovered/Resolved]
